FAERS Safety Report 10136451 (Version 2)
Quarter: 2014Q2

REPORT INFORMATION
  Report Type: Spontaneous
  Country: US (occurrence: None)
  Receive Date: 20140425
  Receipt Date: 20140506
  Transmission Date: 20141212
  Serious: Yes (Other)
  Sender: FDA-Public Use
  Company Number: 2014P1003443

PATIENT
  Age: 13 Year
  Sex: Female
  Weight: 70.85 kg

DRUGS (1)
  1. MYORISAN [Suspect]
     Indication: ACNE
     Route: 048
     Dates: start: 20140217, end: 20140318

REACTIONS (4)
  - Affective disorder [None]
  - Abnormal behaviour [None]
  - Crying [None]
  - Depressed mood [None]
